FAERS Safety Report 8795661 (Version 3)
Quarter: 2012Q4

REPORT INFORMATION
  Report Type: 
  Country: JP (occurrence: JP)
  Receive Date: 20120919
  Receipt Date: 20121011
  Transmission Date: 20130627
  Serious: Yes (Hospitalization)
  Sender: FDA-Public Use
  Company Number: JP-ALLERGAN-1213014US

PATIENT
  Age: 71 Year
  Sex: Female

DRUGS (2)
  1. BOTOX [Suspect]
     Indication: CRAMPS
     Dosage: 300 UNITS, single
     Route: 030
     Dates: start: 20120709, end: 20120709
  2. TERNELIN [Concomitant]
     Indication: MUSCLE SPASMS
     Dosage: 1 mg, tid
     Route: 048

REACTIONS (5)
  - Fall [Unknown]
  - Tremor [Unknown]
  - Grip strength decreased [Unknown]
  - Femoral neck fracture [Unknown]
  - Dyskinesia [Unknown]
